FAERS Safety Report 16403790 (Version 4)
Quarter: 2020Q1

REPORT INFORMATION
  Report Type: Report from Study
  Country: CN (occurrence: CN)
  Receive Date: 20190607
  Receipt Date: 20200113
  Transmission Date: 20200409
  Serious: Yes (Death)
  Sender: FDA-Public Use
  Company Number: CN-ROCHE-2331633

PATIENT
  Age: 73 Year
  Sex: Male
  Weight: 65 kg

DRUGS (21)
  1. ACETYLCYSTEINE. [Concomitant]
     Active Substance: ACETYLCYSTEINE
     Indication: COUGH
     Dosage: SOLUTION FOR INHALATION
     Route: 065
     Dates: start: 20190416, end: 20190507
  2. DEXAMETHASONE SODIUM PHOSPHATE. [Concomitant]
     Active Substance: DEXAMETHASONE SODIUM PHOSPHATE
     Route: 065
     Dates: start: 20190531, end: 20190531
  3. CEFOPERAZONE SODIUM AND SULBACTAM SODIUM [Concomitant]
     Active Substance: CEFOPERAZONE SODIUM\SULBACTAM SODIUM
     Indication: INFECTION
     Route: 065
     Dates: start: 20190429, end: 20190507
  4. INVERT SUGAR AND ELECTROLYTES [Concomitant]
     Dosage: REPLENISH ELECTROLYTE
     Route: 065
     Dates: start: 20190430, end: 20190507
  5. FLUCONAZOLE. [Concomitant]
     Active Substance: FLUCONAZOLE
     Route: 065
     Dates: start: 20190430, end: 20190506
  6. SODIUM CHLORIDE. [Concomitant]
     Active Substance: SODIUM CHLORIDE
     Route: 065
     Dates: start: 20190430, end: 20190506
  7. COMPOUND KUSHEN INJECTION [Concomitant]
     Indication: PAIN
     Route: 065
     Dates: start: 20190530, end: 20190601
  8. CISPLATIN. [Suspect]
     Active Substance: CISPLATIN
     Indication: NON-SMALL CELL LUNG CANCER
     Dosage: DATE OF MOST RECENT DOSE OF CISPLATIN (103.3 MG) PRIOR TO SAE ONSET: 23/JAN/2019?CISPLATIN WILL BE A
     Route: 042
     Dates: start: 20181115
  9. DEXAMETHASONE SODIUM PHOSPHATE. [Concomitant]
     Active Substance: DEXAMETHASONE SODIUM PHOSPHATE
     Route: 065
     Dates: start: 20190430, end: 20190503
  10. ETIMICIN SULFATE [Concomitant]
     Active Substance: ETIMICIN SULFATE
     Indication: INFECTION
     Route: 065
     Dates: start: 20190426, end: 20190506
  11. HEPAROLYSATE [Concomitant]
     Active Substance: MAMMAL LIVER
  12. MINOCYCLINE HYDROCHLORIDE. [Concomitant]
     Active Substance: MINOCYCLINE HYDROCHLORIDE
     Route: 065
     Dates: start: 20190426, end: 20190506
  13. HUMAN ALBUMIN [Concomitant]
     Active Substance: ALBUMIN HUMAN
     Indication: HYPOALBUMINAEMIA
     Route: 065
     Dates: start: 20190430, end: 20190503
  14. COMPOUND METHOXYPHENAMINE [Concomitant]
     Indication: COUGH
     Route: 065
     Dates: start: 20190426, end: 20190507
  15. BUDESONIDE. [Concomitant]
     Active Substance: BUDESONIDE
     Indication: COUGH
     Dosage: SUSPENSION FOR INHALATION
     Route: 065
     Dates: start: 20190416, end: 20190507
  16. VITAMIN C [Concomitant]
     Active Substance: ASCORBIC ACID
     Route: 065
     Dates: start: 20190422, end: 20190507
  17. COMPOUND METHOXYPHENAMINE [Concomitant]
     Indication: PRODUCTIVE COUGH
  18. TORSEMIDE. [Concomitant]
     Active Substance: TORSEMIDE
     Route: 065
     Dates: start: 20190531, end: 20190531
  19. GEMCITABINE. [Suspect]
     Active Substance: GEMCITABINE
     Indication: NON-SMALL CELL LUNG CANCER
     Dosage: DATE OF MOST RECENT DOSE (1721.9 MG) OF GEMCITABINE PRIOR TO SAE ONSET: 30/JAN/2019?GEMCITABINE WILL
     Route: 042
     Dates: start: 20181115
  20. ATEZOLIZUMAB. [Suspect]
     Active Substance: ATEZOLIZUMAB
     Indication: NON-SMALL CELL LUNG CANCER
     Dosage: DATE OF MOST RECENT DOSE OF ATEZOLIZUMAB PRIOR TO SAE ONSET: 06/MAR/2019
     Route: 042
     Dates: start: 20181115
  21. METHYLPREDNISOLONE. [Concomitant]
     Active Substance: METHYLPREDNISOLONE
     Route: 065
     Dates: start: 20190505, end: 20190507

REACTIONS (1)
  - Cardiac failure [Fatal]

NARRATIVE: CASE EVENT DATE: 20190601
